FAERS Safety Report 8498780-1 (Version None)
Quarter: 2012Q3

REPORT INFORMATION
  Report Type: 
  Country: None (occurrence: None)
  Receive Date: 20120709
  Receipt Date: 20120629
  Transmission Date: 20120928
  Serious: No
  Sender: FDA-Public Use
  Company Number: US-AMGEN-USASP2012040455

PATIENT
  Age: 59 Year
  Sex: Female

DRUGS (1)
  1. ENBREL [Suspect]
     Indication: RHEUMATOID ARTHRITIS
     Dosage: 25 MG, 2 TIMES/WK
     Dates: start: 20111201

REACTIONS (9)
  - RHEUMATOID ARTHRITIS [None]
  - FUNGAL INFECTION [None]
  - SINUSITIS [None]
  - PYREXIA [None]
  - PHARYNGITIS STREPTOCOCCAL [None]
  - WEIGHT INCREASED [None]
  - OROPHARYNGEAL PAIN [None]
  - INJECTION SITE PAIN [None]
  - CYSTITIS [None]
